FAERS Safety Report 10348255 (Version 1)
Quarter: 2014Q3

REPORT INFORMATION
  Report Type: Spontaneous
  Country: US (occurrence: US)
  Receive Date: 20140729
  Receipt Date: 20140729
  Transmission Date: 20150326
  Serious: No
  Sender: FDA-Public Use
  Company Number: US-BAYER-2014-110861

PATIENT
  Age: 33 Year
  Sex: Female
  Weight: 45.35 kg

DRUGS (1)
  1. MIRENA [Suspect]
     Active Substance: LEVONORGESTREL
     Dosage: 20 ?G/D, CONT
     Route: 015
     Dates: start: 2009

REACTIONS (9)
  - Pregnancy with contraceptive device [None]
  - Breast enlargement [Not Recovered/Not Resolved]
  - Abdominal distension [None]
  - Device misuse [Not Recovered/Not Resolved]
  - Fatigue [Not Recovered/Not Resolved]
  - Skin striae [Not Recovered/Not Resolved]
  - Device issue [Not Recovered/Not Resolved]
  - Breast pain [Not Recovered/Not Resolved]
  - Abnormal weight gain [Not Recovered/Not Resolved]

NARRATIVE: CASE EVENT DATE: 2014
